FAERS Safety Report 8577800-X (Version None)
Quarter: 2012Q3

REPORT INFORMATION
  Report Type: 
  Country: None (occurrence: None)
  Receive Date: 20120808
  Receipt Date: 20120726
  Transmission Date: 20120928
  Serious: No
  Sender: FDA-Public Use
  Company Number: US-BIOGENIDEC-2012BI014339

PATIENT
  Age: 47 Year
  Sex: Male

DRUGS (1)
  1. TYSABRI [Suspect]
     Indication: MULTIPLE SCLEROSIS
     Route: 042
     Dates: start: 20110524

REACTIONS (18)
  - PAIN IN EXTREMITY [None]
  - STRESS [None]
  - IRRITABILITY [None]
  - HYPERSOMNIA [None]
  - TEMPERATURE INTOLERANCE [None]
  - HYPOAESTHESIA [None]
  - MULTIPLE SCLEROSIS [None]
  - ASTHENIA [None]
  - PERSONALITY CHANGE [None]
  - MEMORY IMPAIRMENT [None]
  - AMNESIA [None]
  - DYSPHONIA [None]
  - DYSPNOEA [None]
  - FATIGUE [None]
  - CHILLS [None]
  - GAIT DISTURBANCE [None]
  - DIARRHOEA [None]
  - THYROID FUNCTION TEST ABNORMAL [None]
